FAERS Safety Report 7351976 (Version 2)
Quarter: 2013Q1

REPORT INFORMATION
  Report Type: Report from Study
  Country: JP (occurrence: JP)
  Receive Date: 20100412
  Receipt Date: 20130208
  Transmission Date: 20140127
  Serious: Yes (Hospitalization)
  Sender: FDA-Public Use
  Company Number: JP-BRISTOL-MYERS SQUIBB COMPANY-15055866

PATIENT
  Age: 71 Year
  Sex: Female
  Weight: 60 kg

DRUGS (5)
  1. ERBITUX SOLN FOR INF 5MG/ML [Suspect]
     Indication: COLON CANCER
     Dosage: 13APR09:500MG?20APR-1JUN09:300MG(42D)?15JUN-10AUG09:250MG (56D)?RECENT:10AUG09 (15TH)
     Route: 041
     Dates: start: 20090413, end: 20090413
  2. TOPOTECIN [Concomitant]
     Indication: COLON CANCER
     Dosage: RECENT INF (7TH):10AUG09 :200 MG
     Route: 041
     Dates: start: 20090413, end: 20090810
  3. RESTAMIN [Concomitant]
     Indication: PREMEDICATION
     Route: 048
     Dates: start: 20090413
  4. DEXART [Concomitant]
     Indication: PREMEDICATION
     Route: 041
     Dates: start: 20090413
  5. KYTRIL [Concomitant]
     Indication: ANTIEMETIC SUPPORTIVE CARE
     Route: 041
     Dates: start: 20090413

REACTIONS (1)
  - Duodenal ulcer perforation [Recovered/Resolved]
